FAERS Safety Report 18978331 (Version 1)
Quarter: 2021Q1

REPORT INFORMATION
  Report Type: Spontaneous
  Country: BR (occurrence: BR)
  Receive Date: 20210307
  Receipt Date: 20210307
  Transmission Date: 20210420
  Serious: Yes (Death, Other)
  Sender: FDA-Public Use
  Company Number: BR-CELGENEUS-BRA-20210301349

PATIENT
  Age: 88 Year
  Sex: Female

DRUGS (2)
  1. VIDAZA [Suspect]
     Active Substance: AZACITIDINE
     Indication: MYELODYSPLASTIC SYNDROME
     Dosage: APPLICATIONS FROM MONDAY TO SUNDAY (7DAYS)
     Route: 065
     Dates: start: 20191014
  2. VIDAZA [Suspect]
     Active Substance: AZACITIDINE
     Dosage: 5 DAYS OF APPLICATION
     Route: 065
     Dates: start: 2020, end: 20210115

REACTIONS (7)
  - Nausea [Unknown]
  - Vomiting [Unknown]
  - White blood cell count decreased [Unknown]
  - Death [Fatal]
  - Platelet count decreased [Unknown]
  - Red blood cell count decreased [Unknown]
  - Drug ineffective [Unknown]

NARRATIVE: CASE EVENT DATE: 2020
